FAERS Safety Report 6434173-6 (Version None)
Quarter: 2009Q4

REPORT INFORMATION
  Report Type: 
  Country: None (occurrence: None)
  Receive Date: 20091110
  Receipt Date: 20090403
  Transmission Date: 20100525
  Serious: No
  Sender: FDA-Public Use
  Company Number: US-ASTRAZENECA-2009SE08359

PATIENT
  Sex: Male

DRUGS (3)
  1. PRILOSEC OTC [Suspect]
     Dosage: UNK DOSE, UNK FREQ FOR 2 DAYS
     Route: 048
  2. BLOOD PRESSURE MEDICATION [Concomitant]
     Dosage: UNKNOWN
  3. IRRITABLE BOWEL SYNDROME MEDICATION [Concomitant]
     Dosage: UNKNOWN

REACTIONS (5)
  - ABDOMINAL DISCOMFORT [None]
  - DIARRHOEA [None]
  - FLATULENCE [None]
  - MALAISE [None]
  - NAUSEA [None]
